FAERS Safety Report 10068302 (Version 2)
Quarter: 2014Q2

REPORT INFORMATION
  Report Type: Spontaneous
  Country: US (occurrence: US)
  Receive Date: 20140409
  Receipt Date: 20140521
  Transmission Date: 20141212
  Serious: No
  Sender: FDA-Public Use
  Company Number: US-PFIZER INC-2014099001

PATIENT
  Age: 33 Year
  Sex: Female
  Weight: 102.04 kg

DRUGS (4)
  1. EFFEXOR XR [Suspect]
     Indication: MAJOR DEPRESSION
     Dosage: 300 MG, DAILY
     Dates: start: 201109
  2. PROMETHAZINE [Concomitant]
     Dosage: 25 MG, AS NEEDED
  3. VISTARIL [Concomitant]
     Indication: ANXIETY
     Dosage: 25 MG, AS NEEDED
  4. ZYPREXA [Concomitant]
     Indication: ANXIETY
     Dosage: 5 MG, AS NEEDED

REACTIONS (10)
  - Poor quality drug administered [Unknown]
  - Product quality issue [Unknown]
  - Migraine [Unknown]
  - Cardiac discomfort [Unknown]
  - Ear discomfort [Unknown]
  - Vitamin K decreased [Unknown]
  - Blood potassium decreased [Unknown]
  - Blood sodium increased [Unknown]
  - Malaise [Unknown]
  - Dizziness [Unknown]
